FAERS Safety Report 8307379-9 (Version None)
Quarter: 2012Q2

REPORT INFORMATION
  Report Type: 
  Country: None (occurrence: None)
  Receive Date: 20120424
  Receipt Date: 20120413
  Transmission Date: 20120825
  Serious: Yes (Other)
  Sender: FDA-Public Use
  Company Number: JP-VERTEX PHARMACEUTICALS INC.-AE-2012-005600

PATIENT
  Age: 54 Year
  Sex: Male

DRUGS (15)
  1. PEG-INTRON [Concomitant]
     Indication: HEPATITIS C
     Route: 051
     Dates: start: 20120223, end: 20120229
  2. RABEPRAZOLE SODIUM [Concomitant]
     Route: 048
  3. METFORMIN HCL [Concomitant]
     Route: 048
  4. PEG-INTRON [Concomitant]
     Route: 051
     Dates: start: 20120307, end: 20120320
  5. TELAVIC (TELAPREVIR) [Suspect]
     Indication: HEPATITIS C
     Route: 048
     Dates: start: 20120223
  6. ASPIRIN [Concomitant]
     Route: 048
  7. JANUVIA [Concomitant]
     Route: 048
  8. REBETOL [Concomitant]
     Indication: HEPATITIS C
     Route: 048
     Dates: start: 20120223, end: 20120313
  9. PEG-INTRON [Concomitant]
     Route: 051
     Dates: start: 20120321, end: 20120327
  10. ACETAMINOPHEN [Concomitant]
     Route: 048
     Dates: start: 20120223
  11. REBETOL [Concomitant]
     Route: 048
     Dates: start: 20120314
  12. PEG-INTRON [Concomitant]
     Route: 051
     Dates: start: 20120301, end: 20120306
  13. SIGMART [Concomitant]
     Route: 048
  14. PEG-INTRON [Concomitant]
     Route: 051
     Dates: start: 20120328, end: 20120404
  15. BEZATOL SR [Concomitant]
     Route: 048

REACTIONS (1)
  - NEUTROPHIL COUNT DECREASED [None]
